FAERS Safety Report 15347973 (Version 1)
Quarter: 2018Q3

REPORT INFORMATION
  Report Type: Spontaneous
  Country: US (occurrence: US)
  Receive Date: 20180904
  Receipt Date: 20180904
  Transmission Date: 20181010
  Serious: No
  Sender: FDA-Public Use
  Company Number: US-MYLANLABS-2018M1063221

PATIENT
  Sex: Female

DRUGS (1)
  1. NIFEDIPINE. [Suspect]
     Active Substance: NIFEDIPINE
     Indication: BLOOD PRESSURE ABNORMAL
     Dosage: UNK
     Route: 065

REACTIONS (2)
  - Joint swelling [Not Recovered/Not Resolved]
  - Headache [Not Recovered/Not Resolved]
